FAERS Safety Report 23332308 (Version 1)
Quarter: 2023Q4

REPORT INFORMATION
  Report Type: Spontaneous
  Country: US (occurrence: None)
  Receive Date: 20231222
  Receipt Date: 20231222
  Transmission Date: 20240110
  Serious: No
  Sender: FDA-Public Use
  Company Number: None

PATIENT

DRUGS (2)
  1. VANCOMYCIN HYDROCHLORIDE [Suspect]
     Active Substance: VANCOMYCIN HYDROCHLORIDE
     Dosage: OTHER ROUTE : INJECTION ;?
     Route: 050
  2. NOREPINEPHRINE BITARTRATE [Suspect]
     Active Substance: NOREPINEPHRINE BITARTRATE
     Dosage: OTHER ROUTE : INJECTION ;?
     Route: 050

REACTIONS (6)
  - Product storage error [None]
  - Product colour issue [None]
  - Product size issue [None]
  - Product design confusion [None]
  - Product packaging confusion [None]
  - Product name confusion [None]
